FAERS Safety Report 15371940 (Version 2)
Quarter: 2018Q3

REPORT INFORMATION
  Report Type: Spontaneous
  Country: IT (occurrence: IT)
  Receive Date: 20180911
  Receipt Date: 20180914
  Transmission Date: 20181010
  Serious: Yes (Other)
  Sender: FDA-Public Use
  Company Number: IT-ASTRAZENECA-2018SF13398

PATIENT
  Age: 16 Year
  Sex: Female

DRUGS (2)
  1. RESILIENT [Suspect]
     Active Substance: LITHIUM SULFATE
     Indication: DRUG ABUSE
     Dosage: 4.0DF ONCE/SINGLE ADMINISTRATION
     Route: 048
     Dates: start: 20180716, end: 20180716
  2. QUETIAPINE. [Suspect]
     Active Substance: QUETIAPINE
     Indication: DRUG ABUSE
     Dosage: 0.35G ONCE/SINGLE ADMINISTRATION
     Route: 048
     Dates: start: 20180716, end: 20180716

REACTIONS (3)
  - Hypotension [Recovered/Resolved]
  - Antipsychotic drug level increased [Recovered/Resolved]
  - Drug abuse [Recovered/Resolved]

NARRATIVE: CASE EVENT DATE: 20180716
